FAERS Safety Report 7666324-X (Version None)
Quarter: 2011Q3

REPORT INFORMATION
  Report Type: 
  Country: None (occurrence: None)
  Receive Date: 20110806
  Receipt Date: 20110317
  Transmission Date: 20111222
  Serious: No
  Sender: FDA-Public Use
  Company Number: US-ABBOTT-11P-163-0712434-00

PATIENT
  Sex: Female
  Weight: 71.278 kg

DRUGS (6)
  1. FISH OIL [Concomitant]
     Indication: PRODUCT USED FOR UNKNOWN INDICATION
     Dosage: WEEKLY
  2. VITAMIN D [Concomitant]
     Indication: PRODUCT USED FOR UNKNOWN INDICATION
  3. CRESTOR [Concomitant]
     Indication: PRODUCT USED FOR UNKNOWN INDICATION
     Dosage: AT BEDTIME
  4. NIASPAN [Suspect]
     Indication: FAMILIAL RISK FACTOR
     Dates: start: 20110106
  5. NIASPAN [Suspect]
     Indication: LOW DENSITY LIPOPROTEIN INCREASED
     Dosage: QHS
     Dates: start: 20100317, end: 20101229
  6. OSCAL [Concomitant]
     Indication: PRODUCT USED FOR UNKNOWN INDICATION

REACTIONS (5)
  - PAIN IN EXTREMITY [None]
  - RASH [None]
  - BONE PAIN [None]
  - FLUSHING [None]
  - MYALGIA [None]
